FAERS Safety Report 15846486 (Version 1)
Quarter: 2019Q1

REPORT INFORMATION
  Report Type: Spontaneous
  Country: NL (occurrence: NL)
  Receive Date: 20190120
  Receipt Date: 20190120
  Transmission Date: 20190417
  Serious: Yes (Hospitalization)
  Sender: FDA-Public Use
  Company Number: NL-ABBVIE-19K-114-2629411-00

PATIENT
  Age: 72 Year
  Sex: Male

DRUGS (1)
  1. MAVIRET [Suspect]
     Active Substance: GLECAPREVIR\PIBRENTASVIR
     Indication: HEPATITIS C
     Route: 048
     Dates: start: 20181212

REACTIONS (2)
  - Eye infection bacterial [Recovered/Resolved with Sequelae]
  - Keratitis [Recovered/Resolved with Sequelae]

NARRATIVE: CASE EVENT DATE: 20181213
